FAERS Safety Report 6267226-6 (Version None)
Quarter: 2009Q3

REPORT INFORMATION
  Report Type: 
  Country: None (occurrence: None)
  Receive Date: 20090714
  Receipt Date: 20090630
  Transmission Date: 20100115
  Serious: Yes (Other)
  Sender: FDA-Public Use
  Company Number: US-BAYER-200912004BCC

PATIENT
  Age: 58 Year
  Sex: Male
  Weight: 88 kg

DRUGS (4)
  1. ALEVE (CAPLET) [Suspect]
     Indication: CARPAL TUNNEL SYNDROME
     Dosage: UNIT DOSE: 220 MG
     Route: 048
     Dates: start: 20080601, end: 20090201
  2. ALEVE (CAPLET) [Suspect]
     Dosage: TOTAL DAILY DOSE: 220 MG  UNIT DOSE: 220 MG
     Route: 048
     Dates: start: 20090201
  3. OMEPRAZOLE [Concomitant]
     Indication: DRUG USE FOR UNKNOWN INDICATION
     Dosage: TOTAL DAILY DOSE: 40 MG
     Route: 065
  4. SYNTHROID [Concomitant]
     Indication: DRUG USE FOR UNKNOWN INDICATION
     Dosage: TOTAL DAILY DOSE: 0.1 MG
     Route: 065

REACTIONS (5)
  - BLISTER [None]
  - HAEMATOCHEZIA [None]
  - PRURITUS GENERALISED [None]
  - RASH MACULAR [None]
  - RASH PAPULAR [None]
